FAERS Safety Report 16303190 (Version 1)
Quarter: 2019Q2

REPORT INFORMATION
  Report Type: Spontaneous
  Country: MT (occurrence: MT)
  Receive Date: 20190513
  Receipt Date: 20190513
  Transmission Date: 20190711
  Serious: Yes (Hospitalization, Other)
  Sender: FDA-Public Use
  Company Number: MT-AUROBINDO-AUR-APL-2019-025680

PATIENT

DRUGS (5)
  1. CLARITHROMYCIN. [Suspect]
     Active Substance: CLARITHROMYCIN
     Indication: HELICOBACTER INFECTION
     Dosage: 500 MG, BID
     Route: 065
  2. WARFARIN [Concomitant]
     Active Substance: WARFARIN
     Indication: HEART RATE ABNORMAL
     Dosage: UNK
     Route: 065
  3. DIGOXIN. [Interacting]
     Active Substance: DIGOXIN
     Indication: HEART RATE ABNORMAL
     Dosage: 0.125 MG, 1D
     Route: 065
  4. AMOXICILLIN. [Interacting]
     Active Substance: AMOXICILLIN
     Indication: HELICOBACTER INFECTION
     Dosage: 1 G, BID
     Route: 065
  5. OMEPRAZOLE. [Interacting]
     Active Substance: OMEPRAZOLE
     Indication: HELICOBACTER INFECTION
     Dosage: 20 MG, BID
     Route: 065

REACTIONS (10)
  - Electrocardiogram abnormal [Unknown]
  - Dizziness [Unknown]
  - Toxicity to various agents [Recovered/Resolved]
  - Vision blurred [Unknown]
  - Nausea [Unknown]
  - Hyperhidrosis [Unknown]
  - Hyperkalaemia [Unknown]
  - Epigastric discomfort [Unknown]
  - Acute kidney injury [Unknown]
  - Drug interaction [Unknown]
